FAERS Safety Report 9366032 (Version 3)
Quarter: 2013Q3

REPORT INFORMATION
  Report Type: Spontaneous
  Country: FI (occurrence: FI)
  Receive Date: 20130625
  Receipt Date: 20130729
  Transmission Date: 20140515
  Serious: Yes (Hospitalization, Other)
  Sender: FDA-Public Use
  Company Number: FI-ROCHE-1237705

PATIENT
  Age: 72 Year
  Sex: Male

DRUGS (2)
  1. AVASTIN [Suspect]
     Indication: MACULAR DEGENERATION
     Route: 050
     Dates: start: 20120503
  2. AVASTIN [Suspect]
     Indication: OFF LABEL USE

REACTIONS (5)
  - Endophthalmitis [Unknown]
  - Toxicity to various agents [Unknown]
  - Off label use [Unknown]
  - Suspected transmission of an infectious agent via product [Unknown]
  - Anterior chamber cell [Unknown]
